FAERS Safety Report 25909127 (Version 1)
Quarter: 2025Q4

REPORT INFORMATION
  Report Type: Report from Study
  Country: CA (occurrence: CA)
  Receive Date: 20251011
  Receipt Date: 20251011
  Transmission Date: 20260118
  Serious: Yes (Other)
  Sender: CELLTRION
  Company Number: CA-CELLTRION INC.-2025CA021304

PATIENT

DRUGS (4)
  1. INFLIXIMAB-DYYB [Suspect]
     Active Substance: INFLIXIMAB-DYYB
     Indication: Colitis ulcerative
     Dosage: 380 MG, Q4WEEKS
     Route: 042
     Dates: start: 20250509
  2. INFLIXIMAB-DYYB [Suspect]
     Active Substance: INFLIXIMAB-DYYB
     Dosage: MAINTENANCE - 380 MG - IV  (INTRAVENOUS) EVERY 4 WEEKS
     Route: 042
     Dates: start: 20250509
  3. INFLIXIMAB-DYYB [Suspect]
     Active Substance: INFLIXIMAB-DYYB
     Dosage: 380 MG, EVERY 4 WEEKS
     Route: 042
     Dates: start: 20250904
  4. INFLIXIMAB-DYYB [Suspect]
     Active Substance: INFLIXIMAB-DYYB
     Dosage: 380 MG, EVERY 4 WEEKS
     Route: 042
     Dates: start: 20251002

REACTIONS (4)
  - Colitis ulcerative [Unknown]
  - Malaise [Unknown]
  - Intentional product use issue [Unknown]
  - Overdose [Unknown]

NARRATIVE: CASE EVENT DATE: 20250601
